FAERS Safety Report 18744551 (Version 1)
Quarter: 2021Q1

REPORT INFORMATION
  Report Type: Other
  Country: CA (occurrence: CA)
  Receive Date: 20210115
  Receipt Date: 20210115
  Transmission Date: 20210419
  Serious: Yes (Other)
  Sender: FDA-Public Use
  Company Number: CA-APOTEX-2021AP001070

PATIENT
  Age: 34 Year
  Sex: Female

DRUGS (5)
  1. INFLUENZA VACCINE [Suspect]
     Active Substance: INFLUENZA VIRUS VACCINE
     Indication: PROPHYLAXIS
     Dosage: UNK
     Route: 030
  2. OFLOXACIN. [Suspect]
     Active Substance: OFLOXACIN
     Indication: LEPROSY
     Dosage: UNK
     Route: 065
  3. DAPSONE. [Suspect]
     Active Substance: DAPSONE
     Indication: LEPROSY
     Dosage: UNK
     Route: 065
  4. RIFAMPIN. [Suspect]
     Active Substance: RIFAMPIN
     Indication: LEPROSY
     Dosage: UNK
     Route: 065
  5. PREDNISONE. [Concomitant]
     Active Substance: PREDNISONE
     Indication: LEPROSY
     Dosage: UNK
     Route: 065

REACTIONS (8)
  - Type 2 lepra reaction [Unknown]
  - Skin lesion [Unknown]
  - Upper respiratory tract infection [Unknown]
  - Methaemoglobinaemia [Unknown]
  - Skin mass [Unknown]
  - Papule [Unknown]
  - Skin plaque [Unknown]
  - Swelling [Unknown]
